FAERS Safety Report 24992126 (Version 1)
Quarter: 2025Q1

REPORT INFORMATION
  Report Type: Spontaneous
  Country: US (occurrence: US)
  Receive Date: 20250220
  Receipt Date: 20250220
  Transmission Date: 20250409
  Serious: No
  Sender: INCYTE
  Company Number: US-EVENT-001557

PATIENT
  Age: 57 Year

DRUGS (1)
  1. OPZELURA [Suspect]
     Active Substance: RUXOLITINIB PHOSPHATE
     Indication: Product used for unknown indication
     Dosage: 1.5%, APPLY TO AFFECTED (AREAS) TWICE DAILY AS NEEDED
     Route: 065

REACTIONS (1)
  - Lip discolouration [Unknown]
